FAERS Safety Report 4748612-X (Version None)
Quarter: 2005Q3

REPORT INFORMATION
  Report Type: 
  Country: None (occurrence: None)
  Receive Date: 20050819
  Receipt Date: 20050810
  Transmission Date: 20060218
  Serious: Yes (Other)
  Sender: FDA-Public Use
  Company Number: GB-ABBOTT-05P-167-0308089-00

PATIENT
  Age: 28 Year
  Sex: Female

DRUGS (2)
  1. DEPAKOTE [Suspect]
     Indication: HYPOMANIA
     Dosage: 750-2000MG
     Route: 048
     Dates: start: 20050101
  2. OLANZAPINE [Suspect]
     Indication: HYPOMANIA
     Dosage: 10-20MG
     Route: 048
     Dates: start: 20040901, end: 20050601

REACTIONS (2)
  - HYPOTHYROIDISM [None]
  - WEIGHT INCREASED [None]
